FAERS Safety Report 8444229-4 (Version None)
Quarter: 2012Q2

REPORT INFORMATION
  Report Type: 
  Country: None (occurrence: None)
  Receive Date: 20120618
  Receipt Date: 20120306
  Transmission Date: 20120825
  Serious: No
  Sender: FDA-Public Use
  Company Number: US-GLAXOSMITHKLINE-A0969200A

PATIENT

DRUGS (5)
  1. CLOBETASOL PROPIONATE [Suspect]
     Indication: DRY SKIN
     Route: 061
  2. DESONIDE [Suspect]
     Indication: DRY SKIN
     Route: 061
  3. FLUOCINONIDE [Suspect]
     Indication: DRY SKIN
     Route: 061
  4. LIPITOR [Suspect]
     Indication: PRODUCT USED FOR UNKNOWN INDICATION
  5. HALOBETASOL PROPIONATE [Suspect]
     Indication: DRY SKIN
     Route: 061

REACTIONS (4)
  - DRUG INEFFECTIVE [None]
  - DRY SKIN [None]
  - PRURITUS [None]
  - HYPERSENSITIVITY [None]
